FAERS Safety Report 23702563 (Version 1)
Quarter: 2024Q2

REPORT INFORMATION
  Report Type: Spontaneous
  Country: IT (occurrence: IT)
  Receive Date: 20240403
  Receipt Date: 20240403
  Transmission Date: 20240715
  Serious: Yes (Hospitalization)
  Sender: FDA-Public Use
  Company Number: IT-MYLANLABS-2024M1029836

PATIENT
  Age: 50 Year
  Sex: Male

DRUGS (1)
  1. METHOTREXATE [Suspect]
     Active Substance: METHOTREXATE
     Indication: Angioimmunoblastic T-cell lymphoma
     Dosage: UNK; RECEIVED 3.5 G/M2; INTRAVENOUS UNSPECIFIED
     Route: 042

REACTIONS (5)
  - Stomatitis [Recovering/Resolving]
  - Mucosal inflammation [Recovering/Resolving]
  - Balanoposthitis infective [Recovering/Resolving]
  - Pseudomonas infection [Recovering/Resolving]
  - Enterococcal infection [Recovering/Resolving]
